FAERS Safety Report 23233448 (Version 1)
Quarter: 2023Q4

REPORT INFORMATION
  Report Type: Spontaneous
  Country: CA (occurrence: CA)
  Receive Date: 20231128
  Receipt Date: 20231128
  Transmission Date: 20240110
  Serious: Yes (Hospitalization)
  Sender: FDA-Public Use
  Company Number: CA-ELI_LILLY_AND_COMPANY-CA202311010856

PATIENT
  Age: 65 Year
  Sex: Male

DRUGS (7)
  1. SELPERCATINIB [Suspect]
     Active Substance: SELPERCATINIB
     Indication: Lung adenocarcinoma
     Dosage: 80 MG, BID
     Route: 048
  2. SELPERCATINIB [Suspect]
     Active Substance: SELPERCATINIB
     Dosage: 200 MG,120 MG IN THE MORNING AND 80 MG AT NIGHT
     Route: 048
  3. SELPERCATINIB [Suspect]
     Active Substance: SELPERCATINIB
     Dosage: 80 MG, BID
     Route: 048
  4. SELPERCATINIB [Suspect]
     Active Substance: SELPERCATINIB
     Dosage: 200 MG,120 MG IN THE MORNING AND 80 MG AT NIGHT
  5. SELPERCATINIB [Suspect]
     Active Substance: SELPERCATINIB
     Dosage: 80 MG, BID
     Route: 048
  6. PRALSETINIB [Suspect]
     Active Substance: PRALSETINIB
     Indication: Lung adenocarcinoma
     Dosage: 400 MG, DAILY
     Route: 048
  7. OCTREOTIDE [Concomitant]
     Active Substance: OCTREOTIDE
     Indication: Product used for unknown indication
     Dosage: 30 MG, MONTHLY (1/M)
     Route: 065

REACTIONS (3)
  - Cellulitis [Unknown]
  - Enteritis [Unknown]
  - Ascites [Unknown]
